FAERS Safety Report 9742802 (Version 2)
Quarter: 2014Q2

REPORT INFORMATION
  Report Type: Spontaneous
  Country: BE (occurrence: BE)
  Receive Date: 20131210
  Receipt Date: 20140414
  Transmission Date: 20141212
  Serious: Yes (Death, Hospitalization, Other)
  Sender: FDA-Public Use
  Company Number: BE-JNJFOC-20131204390

PATIENT
  Age: 80 Year
  Sex: Male
  Weight: 92 kg

DRUGS (11)
  1. XARELTO [Suspect]
     Indication: CEREBROVASCULAR ACCIDENT PROPHYLAXIS
     Route: 048
  2. XARELTO [Suspect]
     Indication: ATRIAL FIBRILLATION
     Route: 048
  3. ASAFLOW [Concomitant]
     Route: 065
  4. MICARDIS [Concomitant]
     Route: 065
  5. LIPITOR [Concomitant]
     Route: 065
  6. MOXONIDINE [Concomitant]
     Route: 065
  7. ALLOPURINOL [Concomitant]
     Route: 065
  8. PANTOPRAZOLE SODIUM [Concomitant]
     Route: 065
  9. LORAMET [Concomitant]
     Route: 065
  10. TRAZODONE [Concomitant]
     Route: 065
  11. ALPRAZOLAM [Concomitant]
     Route: 065

REACTIONS (7)
  - Muscle haemorrhage [Fatal]
  - Cerebrovascular accident [Unknown]
  - Thrombosis [Unknown]
  - Off label use [Unknown]
  - Confusional state [Unknown]
  - Gait disturbance [Unknown]
  - Speech disorder [Unknown]
